FAERS Safety Report 16445996 (Version 2)
Quarter: 2019Q3

REPORT INFORMATION
  Report Type: Spontaneous
  Country: US (occurrence: US)
  Receive Date: 20190618
  Receipt Date: 20190702
  Transmission Date: 20191004
  Serious: Yes (Hospitalization, Other)
  Sender: FDA-Public Use
  Company Number: US-009507513-1906USA004499

PATIENT
  Sex: Female

DRUGS (2)
  1. PROVENTIL [Suspect]
     Active Substance: ALBUTEROL
     Dosage: UNK
     Route: 055
     Dates: end: 2019
  2. PROVENTIL [Suspect]
     Active Substance: ALBUTEROL
     Dosage: UNK
     Route: 055
     Dates: start: 20190602, end: 201906

REACTIONS (7)
  - Pneumonia [Unknown]
  - Poor quality device used [Unknown]
  - Incorrect dose administered by product [Unknown]
  - Dyspnoea [Unknown]
  - Product quality issue [Unknown]
  - Kidney infection [Unknown]
  - Joint fluid drainage [Unknown]

NARRATIVE: CASE EVENT DATE: 2019
